FAERS Safety Report 22778813 (Version 3)
Quarter: 2024Q1

REPORT INFORMATION
  Report Type: Spontaneous
  Country: US (occurrence: US)
  Receive Date: 20230802
  Receipt Date: 20240314
  Transmission Date: 20240410
  Serious: Yes (Other)
  Sender: FDA-Public Use
  Company Number: US-PFIZER INC-PV202300131856

PATIENT
  Age: 56 Year
  Sex: Male

DRUGS (2)
  1. INLYTA [Suspect]
     Active Substance: AXITINIB
     Dosage: UNK
     Dates: start: 2023, end: 202312
  2. INLYTA [Suspect]
     Active Substance: AXITINIB
     Dosage: ONE TABLET ONCE DAILY

REACTIONS (3)
  - Crohn^s disease [Unknown]
  - Hypertension [Recovering/Resolving]
  - Diarrhoea [Unknown]
